FAERS Safety Report 13775810 (Version 2)
Quarter: 2017Q3

REPORT INFORMATION
  Report Type: Report from Study
  Country: PL (occurrence: PL)
  Receive Date: 20170721
  Receipt Date: 20170725
  Transmission Date: 20171127
  Serious: Yes (Death, Hospitalization)
  Sender: FDA-Public Use
  Company Number: PL-ASTELLAS-2017US028823

PATIENT

DRUGS (3)
  1. ERLOTINIB [Suspect]
     Active Substance: ERLOTINIB
     Indication: NON-SMALL CELL LUNG CANCER
     Dosage: UNK UNK, UNKNOWN FREQ.
     Route: 065
  2. GEFITINIB. [Suspect]
     Active Substance: GEFITINIB
     Indication: NON-SMALL CELL LUNG CANCER
     Dosage: UNK, UNKNOWN FREQ.
     Route: 065
  3. AFATINIB [Suspect]
     Active Substance: AFATINIB
     Indication: NON-SMALL CELL LUNG CANCER
     Dosage: UNK, UNKNOWN FREQ.
     Route: 065

REACTIONS (11)
  - Hyponatraemia [Unknown]
  - Mucosal inflammation [Unknown]
  - Nephropathy toxic [Unknown]
  - Hypertransaminasaemia [Unknown]
  - Diarrhoea [Unknown]
  - Anaemia [Unknown]
  - Skin toxicity [Unknown]
  - Hyperglycaemia [Unknown]
  - Pneumonia [Fatal]
  - Limbic encephalitis [Fatal]
  - Hyperbilirubinaemia [Unknown]
